FAERS Safety Report 8559148 (Version 5)
Quarter: 2012Q4

REPORT INFORMATION
  Report Type: 
  Country: DE (occurrence: FR)
  Receive Date: 20120511
  Receipt Date: 20121031
  Transmission Date: 20130627
  Serious: Yes (Disabling, Other)
  Sender: FDA-Public Use
  Company Number: FR-BRISTOL-MYERS SQUIBB COMPANY-16583841

PATIENT
  Age: 51 Year
  Sex: Female

DRUGS (12)
  1. GLUCOPHAGE [Suspect]
     Indication: DIABETES MELLITUS
     Dates: start: 2002, end: 2011
  2. GLUCOPHAGE [Suspect]
     Indication: DIABETES MELLITUS
     Dates: start: 2002, end: 2011
  3. METFORMIN HCL [Suspect]
     Indication: DIABETES MELLITUS
     Dates: start: 2002, end: 2011
  4. ABILIFY [Suspect]
     Indication: BIPOLAR DISORDER
     Dosage: Jun2009,15mg/d
     Dates: start: 2009, end: 2011
  5. XELEVIA [Suspect]
     Indication: DIABETES MELLITUS
     Dosage: Xelevia 100 mg
Xelevia 1000 mg
     Dates: start: 2002, end: 2011
  6. NOVONORM [Suspect]
     Indication: DIABETES MELLITUS
     Dates: start: 2002, end: 2011
  7. EUCREAS [Suspect]
     Indication: DIABETES MELLITUS
     Dates: start: 2002, end: 2011
  8. RISPERIDONE [Suspect]
     Indication: BIPOLAR DISORDER
     Dates: start: 1995, end: 2011
  9. DEPAKOTE [Suspect]
     Indication: BIPOLAR DISORDER
     Dosage: Depakote 500 mg
     Dates: start: 1995, end: 2011
  10. DIAMICRON [Suspect]
     Indication: DIABETES MELLITUS
     Dosage: Diamicron 60mg
     Dates: start: 2002, end: 2011
  11. MEDIATOR [Suspect]
     Indication: DIABETES MELLITUS
     Dates: start: 2006, end: 2009
  12. DELURSAN [Concomitant]
     Dosage: 2Df in morning and evening
     Route: 048
     Dates: start: 20110318

REACTIONS (5)
  - Hepatic cirrhosis [Not Recovered/Not Resolved]
  - Anaemia [Unknown]
  - Epistaxis [Unknown]
  - Fatigue [Unknown]
  - Hypothermia [Unknown]
